FAERS Safety Report 5707780-3 (Version None)
Quarter: 2008Q2

REPORT INFORMATION
  Report Type: 
  Country: None (occurrence: None)
  Receive Date: 20080417
  Receipt Date: 20080414
  Transmission Date: 20081010
  Serious: Yes (Hospitalization)
  Sender: FDA-Public Use
  Company Number: IT-BRISTOL-MYERS SQUIBB COMPANY-14151310

PATIENT
  Age: 81 Year
  Sex: Male

DRUGS (3)
  1. COAPROVEL [Suspect]
     Indication: HYPERTENSION
     Route: 048
     Dates: start: 20080101, end: 20080412
  2. PARACETAMOL [Concomitant]
  3. TICLOPIDINA [Concomitant]
     Indication: VENA CAVA FILTER INSERTION
     Route: 048

REACTIONS (3)
  - DIZZINESS [None]
  - LEUKOPENIA [None]
  - NASAL DRYNESS [None]
